FAERS Safety Report 7051612-0 (Version None)
Quarter: 2010Q4

REPORT INFORMATION
  Report Type: 
  Country: None (occurrence: None)
  Receive Date: 20101019
  Receipt Date: 20101005
  Transmission Date: 20110411
  Serious: Yes (Hospitalization)
  Sender: FDA-Public Use
  Company Number: US-ELI_LILLY_AND_COMPANY-US201010001253

PATIENT
  Sex: Female

DRUGS (12)
  1. FORTEO [Suspect]
     Indication: OSTEOPOROSIS
     Dosage: 20 UG, DAILY (1/D)
  2. SIMVASTATIN [Concomitant]
     Dosage: 40 MG, DAILY (1/D)
  3. WARFARIN SODIUM [Concomitant]
     Dosage: 3 MG, DAILY (1/D)
  4. MORPHINE [Concomitant]
     Dosage: 60 MG, 2/D
  5. HYDROCODONE [Concomitant]
     Dosage: 7.5 MG, 2/D
  6. CLONAZEPAM [Concomitant]
     Dosage: 1 MG, 3/D
  7. CITALOPRAM HYDROBROMIDE [Concomitant]
     Dosage: 20 MG, DAILY (1/D)
  8. CALCIUM [Concomitant]
     Dosage: 1200 MG, DAILY (1/D)
  9. VITAMIN D [Concomitant]
     Dosage: 400 U, DAILY (1/D)
  10. ALBUTEROL [Concomitant]
     Dosage: UNK, 3/D
     Route: 055
  11. OXYGEN [Concomitant]
     Dosage: 2 LITER, AS NEEDED
  12. AMBIEN [Concomitant]
     Dosage: UNK, AS NEEDED

REACTIONS (8)
  - ARTHRALGIA [None]
  - CONFUSIONAL STATE [None]
  - HOSPITALISATION [None]
  - INTERVERTEBRAL DISC PROTRUSION [None]
  - OSTEOPOROSIS [None]
  - PAIN [None]
  - PAIN IN EXTREMITY [None]
  - RIB FRACTURE [None]
